FAERS Safety Report 14239965 (Version 3)
Quarter: 2018Q2

REPORT INFORMATION
  Report Type: Report from Study
  Country: BR (occurrence: BR)
  Receive Date: 20171130
  Receipt Date: 20180601
  Transmission Date: 20180711
  Serious: No
  Sender: FDA-Public Use
  Company Number: BR-UCBSA-2017047289

PATIENT
  Age: 35 Year
  Sex: Female
  Weight: 52 kg

DRUGS (4)
  1. LACOSAMIDE. [Suspect]
     Active Substance: LACOSAMIDE
     Indication: EPILEPSY
     Dosage: 100 MG, 2X/DAY (BID)
     Route: 048
     Dates: start: 20140101, end: 2016
  2. LACOSAMIDE. [Suspect]
     Active Substance: LACOSAMIDE
     Dosage: 200 MG, 2X/DAY (BID)
     Route: 048
     Dates: start: 2016
  3. FRISIUM [Concomitant]
     Active Substance: CLOBAZAM
     Indication: EPILEPSY
  4. TOPIRAMATE. [Concomitant]
     Active Substance: TOPIRAMATE
     Indication: PRODUCT USED FOR UNKNOWN INDICATION

REACTIONS (6)
  - Petit mal epilepsy [Recovered/Resolved]
  - Drug ineffective [Unknown]
  - Syncope [Recovered/Resolved]
  - Pruritus [Unknown]
  - Hypotrichosis [Not Recovered/Not Resolved]
  - Seizure [Recovering/Resolving]

NARRATIVE: CASE EVENT DATE: 2014
